FAERS Safety Report 19667450 (Version 1)
Quarter: 2021Q3

REPORT INFORMATION
  Report Type: Spontaneous
  Country: US (occurrence: US)
  Receive Date: 20210806
  Receipt Date: 20210806
  Transmission Date: 20211014
  Serious: Yes (Hospitalization, Other)
  Sender: FDA-Public Use
  Company Number: US-PFIZER INC-202101004965

PATIENT
  Age: 38 Year
  Sex: Female

DRUGS (10)
  1. FENTANYL. [Concomitant]
     Active Substance: FENTANYL
     Dosage: UNK
     Route: 041
  2. NOREPINEPHRINE. [Concomitant]
     Active Substance: NOREPINEPHRINE
     Dosage: UNK
     Route: 042
  3. CHLORAMPHENICOL [Concomitant]
     Active Substance: CHLORAMPHENICOL
     Indication: ENDOCARDITIS
     Dosage: 12.5 MG/KG, 4X/DAY
     Route: 042
  4. LINEZOLID. [Concomitant]
     Active Substance: LINEZOLID
     Indication: ENDOCARDITIS
     Dosage: UNK (6?WEEK COURSE)
     Route: 048
  5. DAPTOMYCIN. [Concomitant]
     Active Substance: DAPTOMYCIN
     Dosage: 10 MG/KG EVERY 48 HOURS
     Route: 042
  6. DAPTOMYCIN. [Concomitant]
     Active Substance: DAPTOMYCIN
     Dosage: 7 MG/KG EVERY 48 HOURS (TO COMPLETE A 42 DAYS COURSE OF THERAPY)
     Route: 042
  7. EPINEPHRINE. [Concomitant]
     Active Substance: EPINEPHRINE
     Dosage: UNK
  8. VASOPRESSIN. [Concomitant]
     Active Substance: VASOPRESSIN
     Dosage: UNK
  9. GENTAMICIN SULFATE. [Suspect]
     Active Substance: GENTAMICIN SULFATE
     Indication: ENDOCARDITIS
     Dosage: 1 MG/KG, 3X/DAY
     Route: 042
  10. DAPTOMYCIN. [Concomitant]
     Active Substance: DAPTOMYCIN
     Indication: ENDOCARDITIS
     Dosage: 6 MG/KG, 1X/DAY
     Route: 042

REACTIONS (2)
  - Treatment failure [Unknown]
  - Acute kidney injury [Unknown]
